FAERS Safety Report 11078290 (Version 1)
Quarter: 2015Q2

REPORT INFORMATION
  Report Type: Spontaneous
  Country: US (occurrence: None)
  Receive Date: 20150429
  Receipt Date: 20150429
  Transmission Date: 20150821
  Serious: Yes (Other)
  Sender: FDA-Public Use
  Company Number: None

PATIENT
  Age: 64 Year
  Sex: Female
  Weight: 53.52 kg

DRUGS (9)
  1. WOMEN^S 50+ MULTIPLE VITAMIN [Concomitant]
  2. TRI-EST/PROG E4M [Concomitant]
  3. PHOSPHATIDYLSERINE [Concomitant]
  4. EPA/DHA [Concomitant]
  5. PRILOSEC [Suspect]
     Active Substance: OMEPRAZOLE MAGNESIUM
     Indication: IMPAIRED HEALING
     Route: 048
  6. DHEA [Concomitant]
     Active Substance: DEHYDROEPIANDROSTERONE-3-SULFATE SODIUM
  7. VITAMIN D3 [Concomitant]
     Active Substance: CHOLECALCIFEROL
  8. PRILOSEC [Suspect]
     Active Substance: OMEPRAZOLE MAGNESIUM
     Indication: GASTRIC ULCER
     Route: 048
  9. UBIQUINOL-QH [Concomitant]

REACTIONS (7)
  - Headache [None]
  - Weight decreased [None]
  - Alopecia [None]
  - Fungal infection [None]
  - Amnesia [None]
  - Nail disorder [None]
  - Candida infection [None]
